FAERS Safety Report 8152157-7 (Version None)
Quarter: 2012Q1

REPORT INFORMATION
  Report Type: 
  Country: None (occurrence: None)
  Receive Date: 20120215
  Receipt Date: 20120215
  Transmission Date: 20120608
  Serious: Yes (Hospitalization)
  Sender: FDA-Public Use
  Company Number: None

PATIENT
  Sex: Male
  Weight: 56.7 kg

DRUGS (4)
  1. DAUNORUBICIN HCL [Suspect]
     Dosage: 40 MG
     Dates: end: 20120208
  2. VINCRISTINE SULFATE [Suspect]
     Dosage: 2 MG
     Dates: end: 20120208
  3. PREDNISONE TAB [Suspect]
     Dosage: 250 MG
     Dates: end: 20120210
  4. CYTARABINE [Suspect]
     Dosage: 70 MG
     Dates: end: 20120207

REACTIONS (6)
  - HYPERPHOSPHATAEMIA [None]
  - TUMOUR LYSIS SYNDROME [None]
  - HYPERKALAEMIA [None]
  - RENAL FAILURE ACUTE [None]
  - DIALYSIS [None]
  - BLOOD URIC ACID INCREASED [None]
